FAERS Safety Report 9640428 (Version 2)
Quarter: 2013Q4

REPORT INFORMATION
  Report Type: Spontaneous
  Country: US (occurrence: US)
  Receive Date: 20131023
  Receipt Date: 20131127
  Transmission Date: 20140711
  Serious: Yes (Death, Hospitalization)
  Sender: FDA-Public Use
  Company Number: US-SA-2013SA105860

PATIENT
  Age: 56 Year
  Sex: Male
  Weight: 114.3 kg

DRUGS (1)
  1. MULTAQ [Suspect]
     Indication: ATRIAL FIBRILLATION
     Route: 048
     Dates: start: 20121213

REACTIONS (3)
  - Death [Fatal]
  - Chest injury [Unknown]
  - Dyspnoea [Unknown]
